FAERS Safety Report 23335216 (Version 1)
Quarter: 2023Q4

REPORT INFORMATION
  Report Type: Spontaneous
  Country: RO (occurrence: RO)
  Receive Date: 20231225
  Receipt Date: 20231225
  Transmission Date: 20240109
  Serious: Yes (Other)
  Sender: FDA-Public Use
  Company Number: None

PATIENT
  Age: 60 Year
  Sex: Female
  Weight: 60 kg

DRUGS (5)
  1. ETANERCEPT [Suspect]
     Active Substance: ETANERCEPT
     Indication: Rheumatoid arthritis
     Dosage: 50 MG, WEEKLY
     Route: 058
     Dates: start: 20231026, end: 20231128
  2. RAMIPRIL [Concomitant]
     Active Substance: RAMIPRIL
     Indication: Hypertension
     Dosage: 5 MG, DAILY
     Route: 048
  3. SULFASALAZINUM [Concomitant]
     Indication: Rheumatoid arthritis
     Dosage: 1 G, DAILY
     Route: 048
  4. INDAPAMID LPH [Concomitant]
     Indication: Hypertension
     Dosage: 1.5 MG/ DAY
     Route: 048
  5. LEFLUNOMIDUM [Concomitant]
     Indication: Rheumatoid arthritis
     Dosage: 20 MG, DAILY
     Route: 048

REACTIONS (5)
  - Hypertensive crisis [Recovered/Resolved]
  - Headache [Recovered/Resolved]
  - Malaise [Recovered/Resolved]
  - Blood pressure increased [Recovered/Resolved]
  - Headache [Recovered/Resolved]

NARRATIVE: CASE EVENT DATE: 20231127
